FAERS Safety Report 17026592 (Version 1)
Quarter: 2019Q4

REPORT INFORMATION
  Report Type: Spontaneous
  Country: US (occurrence: US)
  Receive Date: 20191112
  Receipt Date: 20191112
  Transmission Date: 20200122
  Serious: Yes (Hospitalization)
  Sender: FDA-Public Use
  Company Number: None

PATIENT
  Age: 64 Year
  Sex: Male

DRUGS (5)
  1. ERLEADA [Suspect]
     Active Substance: APALUTAMIDE
     Indication: PROSTATE CANCER
     Route: 048
     Dates: start: 20181018
  2. CLOPIDOGREL TAB 75 MG [Concomitant]
  3. PIOGLITAZONE TAB 45 MG [Concomitant]
  4. ATORVASTATIN TAB 20 MG [Concomitant]
  5. LISINOP/HCTZ TAB 20-25 MG [Concomitant]

REACTIONS (1)
  - Hospitalisation [None]
